FAERS Safety Report 8768401 (Version 1)
Quarter: 2012Q4

REPORT INFORMATION
  Report Type: 
  Country: HU (occurrence: HU)
  Receive Date: 20120905
  Receipt Date: 20120905
  Transmission Date: 20130627
  Serious: Yes (Other)
  Sender: FDA-Public Use
  Company Number: HU-ROCHE-1111384

PATIENT
  Age: 53 Year
  Sex: Female

DRUGS (14)
  1. CLONAZEPAM [Suspect]
     Indication: BIPOLAR DISORDER
     Dosage: Dose: 1-1-2 mg
     Route: 065
  2. CLONAZEPAM [Suspect]
     Dosage: Dose: 0.5-0.5-3 mg
     Route: 065
  3. QUETIAPINE FUMARATE [Suspect]
     Indication: BIPOLAR DISORDER
     Route: 065
  4. CARBAMAZEPINE [Suspect]
     Indication: BIPOLAR DISORDER
     Route: 065
  5. ESCITALOPRAM [Suspect]
     Indication: BIPOLAR DISORDER
     Route: 065
  6. LITHIUM CARBONATE [Suspect]
     Indication: BIPOLAR DISORDER
     Route: 065
  7. LITHIUM CARBONATE [Suspect]
     Route: 065
  8. CLONAZEPAM [Suspect]
     Indication: BIPOLAR DISORDER
     Route: 065
  9. ATORVASTATIN [Concomitant]
     Indication: HYPERLIPIDAEMIA
  10. LEVOTHYROXIN [Concomitant]
     Route: 065
  11. KETOCONAZOLE [Concomitant]
     Indication: INTERTRIGO
     Route: 065
  12. AMILORIDE [Concomitant]
     Route: 065
  13. HYDROCHLOROTHIAZIDE [Concomitant]
     Route: 065
  14. ACETYLSALICYLIC ACID [Concomitant]
     Route: 065

REACTIONS (3)
  - Sinus arrhythmia [Recovering/Resolving]
  - Aortic valve incompetence [None]
  - Left atrial dilatation [None]
